FAERS Safety Report 7286671-3 (Version None)
Quarter: 2011Q1

REPORT INFORMATION
  Report Type: 
  Country: None (occurrence: None)
  Receive Date: 20110210
  Receipt Date: 20110201
  Transmission Date: 20110831
  Serious: Yes (Hospitalization)
  Sender: FDA-Public Use
  Company Number: BR-ASTRAZENECA-2011SE05677

PATIENT
  Age: 480 Month
  Sex: Female
  Weight: 47 kg

DRUGS (2)
  1. ENTOCORT EC [Suspect]
     Route: 048
     Dates: start: 20100801
  2. ENTOCORT EC [Suspect]
     Indication: CROHN'S DISEASE
     Route: 048
     Dates: start: 20090101, end: 20100801

REACTIONS (4)
  - DRUG DOSE OMISSION [None]
  - CROHN'S DISEASE [None]
  - HYPOTENSION [None]
  - WEIGHT DECREASED [None]
